FAERS Safety Report 7921179-0 (Version None)
Quarter: 2011Q4

REPORT INFORMATION
  Report Type: 
  Country: None (occurrence: None)
  Receive Date: 20111117
  Receipt Date: 20111106
  Transmission Date: 20120403
  Serious: Yes (Other)
  Sender: FDA-Public Use
  Company Number: US-JNJFOC-20111103718

PATIENT
  Age: 31 Year
  Sex: Male

DRUGS (3)
  1. LANTUS [Concomitant]
     Indication: DIABETES MELLITUS
     Route: 065
  2. BENADRYL [Suspect]
     Route: 048
  3. BENADRYL [Suspect]
     Indication: HYPERSENSITIVITY
     Dosage: ONCE
     Route: 048
     Dates: start: 20111106

REACTIONS (4)
  - ASTHMA [None]
  - DRUG INEFFECTIVE FOR UNAPPROVED INDICATION [None]
  - OFF LABEL USE [None]
  - HYPERSENSITIVITY [None]
